FAERS Safety Report 9096582 (Version 2)
Quarter: 2013Q1

REPORT INFORMATION
  Report Type: Spontaneous
  Country: FR (occurrence: None)
  Receive Date: 20130125
  Receipt Date: 20130328
  Transmission Date: 20140127
  Serious: Yes (Other)
  Sender: FDA-Public Use
  Company Number: 220133

PATIENT
  Age: 90 Year
  Sex: Male

DRUGS (2)
  1. INNOHEP [Suspect]
     Indication: PULMONARY EMBOLISM
     Route: 058
     Dates: start: 2012
  2. PREVISCAN (FLUINDIONE) [Concomitant]

REACTIONS (5)
  - Neoplasm progression [None]
  - Deep vein thrombosis [None]
  - Drug ineffective [None]
  - Refusal of treatment by patient [None]
  - Refusal of treatment by relative [None]
